FAERS Safety Report 16967625 (Version 1)
Quarter: 2019Q4

REPORT INFORMATION
  Report Type: Spontaneous
  Country: PT (occurrence: PT)
  Receive Date: 20191028
  Receipt Date: 20191028
  Transmission Date: 20200122
  Serious: Yes (Other)
  Sender: FDA-Public Use
  Company Number: PT-MYLANLABS-2019M1101400

PATIENT
  Age: 49 Year
  Sex: Female

DRUGS (7)
  1. TAMOXIFEN [Suspect]
     Active Substance: TAMOXIFEN
     Indication: BREAST CANCER
     Dosage: UNK
     Route: 048
  2. ANASTROZOLE. [Suspect]
     Active Substance: ANASTROZOLE
     Dosage: UNK
     Route: 048
  3. CAPECITABINE. [Concomitant]
     Active Substance: CAPECITABINE
     Indication: BREAST CANCER
     Dosage: UNK
  4. ANASTROZOLE. [Suspect]
     Active Substance: ANASTROZOLE
     Indication: BREAST CANCER
     Dosage: UNK
     Route: 048
     Dates: end: 201208
  5. TRASTUZUMAB. [Concomitant]
     Active Substance: TRASTUZUMAB
     Indication: BREAST CANCER
     Dosage: UNK
  6. LAPATINIB [Concomitant]
     Active Substance: LAPATINIB
     Indication: BREAST CANCER
     Dosage: UNK
  7. CARBOPLATIN W/PACLITAXEL [Concomitant]
     Active Substance: CARBOPLATIN\PACLITAXEL
     Indication: BREAST CANCER
     Dosage: UNK
     Dates: start: 201108, end: 201201

REACTIONS (1)
  - Malignant neoplasm progression [Unknown]
